FAERS Safety Report 9723937 (Version 3)
Quarter: 2014Q1

REPORT INFORMATION
  Report Type: Spontaneous
  Country: US (occurrence: US)
  Receive Date: 20131202
  Receipt Date: 20140311
  Transmission Date: 20141002
  Serious: Yes (Hospitalization, Other)
  Sender: FDA-Public Use
  Company Number: US-AMGEN-USASP2013077693

PATIENT
  Age: 50 Year
  Sex: Female

DRUGS (1)
  1. ENBREL [Suspect]
     Indication: RHEUMATOID ARTHRITIS
     Dosage: 50 MG, QWK
     Route: 065
     Dates: start: 201308, end: 201401

REACTIONS (12)
  - Dyspnoea [Recovered/Resolved]
  - Pyrexia [Unknown]
  - Musculoskeletal pain [Unknown]
  - Adverse drug reaction [Recovered/Resolved]
  - Postoperative respiratory distress [Recovered/Resolved]
  - Airway complication of anaesthesia [Recovered/Resolved]
  - Pneumonia [Unknown]
  - Vomiting [Not Recovered/Not Resolved]
  - Pain in extremity [Not Recovered/Not Resolved]
  - Nausea [Not Recovered/Not Resolved]
  - Therapeutic response decreased [Unknown]
  - Drug effect incomplete [Unknown]
